FAERS Safety Report 16993780 (Version 1)
Quarter: 2019Q4

REPORT INFORMATION
  Report Type: Spontaneous
  Country: FR (occurrence: FR)
  Receive Date: 20191105
  Receipt Date: 20191105
  Transmission Date: 20200122
  Serious: Yes (Other)
  Sender: FDA-Public Use
  Company Number: FR-PFIZER INC-2019475137

PATIENT
  Age: 60 Year
  Sex: Male
  Weight: 105 kg

DRUGS (4)
  1. CLAMOXYL [AMOXICILLIN TRIHYDRATE;CLAVULANATE POTASSIUM] [Suspect]
     Active Substance: AMOXICILLIN\CLAVULANATE POTASSIUM
     Indication: INFECTION
     Dosage: 9 G, 1X/DAY
     Route: 048
     Dates: start: 20190918, end: 20191004
  2. RIMACTANE [Suspect]
     Active Substance: RIFAMPIN
     Indication: INFECTION
     Dosage: 1200 MG, 1X/DAY
     Route: 048
     Dates: start: 20190918, end: 20190927
  3. DALACINE [Suspect]
     Active Substance: CLINDAMYCIN
     Indication: INFECTION
     Dosage: 1200 MG, 1X/DAY
     Route: 048
     Dates: start: 20190927, end: 20191004
  4. LOVENOX [Suspect]
     Active Substance: ENOXAPARIN SODIUM
     Indication: THROMBOSIS PROPHYLAXIS
     Dosage: 4000 IU, 1X/DAY
     Route: 058
     Dates: start: 20190821

REACTIONS (1)
  - Hepatocellular injury [Recovering/Resolving]

NARRATIVE: CASE EVENT DATE: 20190918
